FAERS Safety Report 10040610 (Version 2)
Quarter: 2014Q1

REPORT INFORMATION
  Report Type: Spontaneous
  Country: US (occurrence: US)
  Receive Date: 20140327
  Receipt Date: 20140327
  Transmission Date: 20141002
  Serious: Yes (Hospitalization)
  Sender: FDA-Public Use
  Company Number: US-RANBAXY-2014US-79147

PATIENT
  Age: 76 Year
  Sex: Female

DRUGS (2)
  1. AMOXICILLIN [Suspect]
     Indication: OTITIS MEDIA
     Dosage: 500 MG, BID
     Route: 048
  2. AZITHROMYCIN [Suspect]
     Indication: OTITIS MEDIA
     Dosage: 500 MG, DAILY
     Route: 048

REACTIONS (4)
  - Anaphylactic reaction [Recovering/Resolving]
  - Chronic obstructive pulmonary disease [Recovering/Resolving]
  - Pneumocystis test positive [Recovering/Resolving]
  - Pneumonia [Recovering/Resolving]
